FAERS Safety Report 9830463 (Version 2)
Quarter: 2014Q1

REPORT INFORMATION
  Report Type: Report from Study
  Country: CA (occurrence: CA)
  Receive Date: 20140120
  Receipt Date: 20140123
  Transmission Date: 20141002
  Serious: Yes (Hospitalization)
  Sender: FDA-Public Use
  Company Number: CA-JNJFOC-20140104782

PATIENT
  Age: 49 Year
  Sex: Female
  Weight: 86 kg

DRUGS (4)
  1. REMICADE [Suspect]
     Indication: RHEUMATOID ARTHRITIS
     Route: 042
  2. REMICADE [Suspect]
     Indication: RHEUMATOID ARTHRITIS
     Route: 042
     Dates: start: 20130525
  3. BENADRYL [Concomitant]
     Route: 042
  4. METFORMIN [Concomitant]
     Dosage: TAKEN DAILY, WITH DECREASING DOSES WEEKLY.
     Route: 048

REACTIONS (3)
  - Biliary tract disorder [Unknown]
  - Bladder mass [Not Recovered/Not Resolved]
  - Hepatomegaly [Not Recovered/Not Resolved]
